FAERS Safety Report 7643639-2 (Version None)
Quarter: 2011Q3

REPORT INFORMATION
  Report Type: 
  Country: None (occurrence: None)
  Receive Date: 20110729
  Receipt Date: 20110721
  Transmission Date: 20111222
  Serious: Yes (Other)
  Sender: FDA-Public Use
  Company Number: JP-ASTELLAS-2011JP005027

PATIENT
  Sex: Female

DRUGS (2)
  1. PROGRAF [Suspect]
     Indication: RHEUMATOID ARTHRITIS
     Dosage: UNK
     Route: 065
     Dates: start: 20070423
  2. METHOTREXATE [Concomitant]
     Route: 065

REACTIONS (3)
  - ULCERATIVE KERATITIS [None]
  - NASOPHARYNGITIS [None]
  - STOMATITIS [None]
